FAERS Safety Report 11297452 (Version 1)
Quarter: 2015Q3

REPORT INFORMATION
  Report Type: Spontaneous
  Country: US (occurrence: US)
  Receive Date: 20150722
  Receipt Date: 20150722
  Transmission Date: 20151125
  Serious: No
  Sender: FDA-Public Use
  Company Number: US-ELI_LILLY_AND_COMPANY-US200805003900

PATIENT
  Age: 39 Year
  Sex: Male

DRUGS (2)
  1. HUMATROPE [Suspect]
     Active Substance: SOMATROPIN
     Dosage: 5 MG, UNKNOWN
     Dates: start: 20080510, end: 20080512
  2. HUMATROPE [Suspect]
     Active Substance: SOMATROPIN
     Dosage: 5 MG, UNKNOWN
     Dates: start: 20080510, end: 20080512

REACTIONS (5)
  - Therapeutic response unexpected [Recovered/Resolved]
  - Myopathy [Recovered/Resolved]
  - Myalgia [Not Recovered/Not Resolved]
  - Insomnia [Recovered/Resolved]
  - Tendonitis [Unknown]

NARRATIVE: CASE EVENT DATE: 20080510
